FAERS Safety Report 6287898-X (Version None)
Quarter: 2009Q3

REPORT INFORMATION
  Report Type: 
  Country: None (occurrence: None)
  Receive Date: 20090729
  Receipt Date: 20090720
  Transmission Date: 20100115
  Serious: Yes (Other)
  Sender: FDA-Public Use
  Company Number: US-JNJFOC-20090401904

PATIENT
  Sex: Male
  Weight: 120.66 kg

DRUGS (4)
  1. REMICADE [Suspect]
     Route: 042
  2. REMICADE [Suspect]
     Indication: PSORIASIS
     Route: 042
  3. LISINOPRIL [Concomitant]
  4. VITAMINS [Concomitant]

REACTIONS (7)
  - COUGH [None]
  - DIZZINESS [None]
  - FATIGUE [None]
  - FLUSHING [None]
  - HEADACHE [None]
  - LUNG NEOPLASM [None]
  - RESPIRATORY TRACT CONGESTION [None]
